FAERS Safety Report 4351837-9 (Version None)
Quarter: 2004Q2

REPORT INFORMATION
  Report Type: 
  Country: None (occurrence: None)
  Receive Date: 20040428
  Receipt Date: 20040222
  Transmission Date: 20050107
  Serious: Yes (Death, Hospitalization, Other)
  Sender: FDA-Public Use
  Company Number: KII-2004-0009594

PATIENT
  Age: 38 Year
  Sex: Female

DRUGS (4)
  1. MORPHINE SULFATE [Suspect]
  2. PHENYTOIN [Concomitant]
  3. BENZODIAZEPINE DERIVATIVES () [Suspect]
  4. ACETAMINOPHEN [Suspect]

REACTIONS (28)
  - ALANINE AMINOTRANSFERASE INCREASED [None]
  - AMMONIA INCREASED [None]
  - ASPARTATE AMINOTRANSFERASE INCREASED [None]
  - BLOOD ALKALINE PHOSPHATASE INCREASED [None]
  - BLOOD BICARBONATE DECREASED [None]
  - BLOOD CREATININE INCREASED [None]
  - BLOOD PH INCREASED [None]
  - BLOOD PRESSURE DIASTOLIC DECREASED [None]
  - BLOOD PRESSURE SYSTOLIC INCREASED [None]
  - BLOOD UREA DECREASED [None]
  - CEREBRAL INFARCTION [None]
  - COMA [None]
  - ELECTROCARDIOGRAM QRS COMPLEX ABNORMAL [None]
  - HEART RATE INCREASED [None]
  - INCREASED VISCOSITY OF BRONCHIAL SECRETION [None]
  - INTENTIONAL OVERDOSE [None]
  - INTENTIONAL SELF-INJURY [None]
  - METABOLIC ACIDOSIS [None]
  - MULTIPLE DRUG OVERDOSE [None]
  - OLIGURIA [None]
  - PNEUMONIA [None]
  - PUPIL FIXED [None]
  - PUPILS UNEQUAL [None]
  - PYREXIA [None]
  - RESPIRATORY FAILURE [None]
  - RESPIRATORY RATE INCREASED [None]
  - RHONCHI [None]
  - WHITE BLOOD CELL COUNT INCREASED [None]
